FAERS Safety Report 24909184 (Version 1)
Quarter: 2025Q1

REPORT INFORMATION
  Report Type: Spontaneous
  Country: CA (occurrence: CA)
  Receive Date: 20250131
  Receipt Date: 20250131
  Transmission Date: 20250408
  Serious: Yes (Other)
  Sender: AMGEN
  Company Number: CA-AMGEN-CANSP2025014971

PATIENT
  Sex: Male

DRUGS (4)
  1. FILGRASTIM [Suspect]
     Active Substance: FILGRASTIM
     Indication: Haematopoietic stem cell mobilisation
     Route: 065
  2. LOSARTAN [Concomitant]
     Active Substance: LOSARTAN
  3. IRBESARTAN [Concomitant]
     Active Substance: IRBESARTAN
  4. MELPHALAN [Concomitant]
     Active Substance: MELPHALAN
     Route: 040

REACTIONS (10)
  - Blood pressure systolic decreased [Unknown]
  - Blood pressure diastolic decreased [Unknown]
  - Glomerular filtration rate decreased [Unknown]
  - Troponin increased [Unknown]
  - Cardiac disorder [Recovered/Resolved]
  - Atrial fibrillation [Unknown]
  - Atrial thrombosis [Unknown]
  - Globotriaosylceramide increased [Recovering/Resolving]
  - Antibody test positive [Unknown]
  - Myocardial fibrosis [Unknown]
